FAERS Safety Report 9811637 (Version 4)
Quarter: 2015Q3

REPORT INFORMATION
  Report Type: Spontaneous
  Country: US (occurrence: US)
  Receive Date: 20140110
  Receipt Date: 20150728
  Transmission Date: 20151125
  Serious: Yes (Disabling, Other)
  Sender: FDA-Public Use
  Company Number: US-SANOFI-AVENTIS-2013SA059268

PATIENT
  Age: 65 Year
  Sex: Male

DRUGS (4)
  1. PLAVIX [Suspect]
     Active Substance: CLOPIDOGREL BISULFATE
     Indication: MYOCARDIAL INFARCTION
     Route: 048
     Dates: start: 20080611, end: 20110727
  2. ASPIRIN. [Concomitant]
     Active Substance: ASPIRIN
     Dates: start: 20080611, end: 20110727
  3. PLAVIX [Suspect]
     Active Substance: CLOPIDOGREL BISULFATE
     Indication: STENT PLACEMENT
     Route: 048
     Dates: start: 20080611, end: 20110727
  4. PLAVIX [Suspect]
     Active Substance: CLOPIDOGREL BISULFATE
     Indication: ACUTE CORONARY SYNDROME
     Route: 048
     Dates: start: 20080611, end: 20110727

REACTIONS (13)
  - Anhedonia [Not Recovered/Not Resolved]
  - Seizure [Unknown]
  - Tension [Not Recovered/Not Resolved]
  - Economic problem [Not Recovered/Not Resolved]
  - Injury [Not Recovered/Not Resolved]
  - Psychological trauma [Not Recovered/Not Resolved]
  - Loss of employment [Not Recovered/Not Resolved]
  - Cerebral haemorrhage [Unknown]
  - Pain [Not Recovered/Not Resolved]
  - Cerebrovascular accident [Unknown]
  - Physical disability [Not Recovered/Not Resolved]
  - Deformity [Not Recovered/Not Resolved]
  - Social problem [Not Recovered/Not Resolved]

NARRATIVE: CASE EVENT DATE: 201107
